FAERS Safety Report 8616786-6 (Version None)
Quarter: 2012Q3

REPORT INFORMATION
  Report Type: 
  Country: None (occurrence: None)
  Receive Date: 20120823
  Receipt Date: 20120807
  Transmission Date: 20120928
  Serious: No
  Sender: FDA-Public Use
  Company Number: US-009507513-1207USA009539

PATIENT

DRUGS (3)
  1. DULERA [Suspect]
     Indication: ASTHMA
  2. PREDNISONE TAB [Concomitant]
  3. FLUTICASONE PROPIONATE [Suspect]

REACTIONS (1)
  - GASTROOESOPHAGEAL REFLUX DISEASE [None]
